FAERS Safety Report 15857444 (Version 1)
Quarter: 2018Q4

REPORT INFORMATION
  Report Type: Spontaneous
  Country: US (occurrence: US)
  Receive Date: 20181228
  Receipt Date: 20181228
  Transmission Date: 20190205
  Serious: Yes (Hospitalization)
  Sender: FDA-Public Use
  Company Number: None

PATIENT
  Age: 69 Year
  Sex: Female

DRUGS (20)
  1. OXYCONTIN [Concomitant]
     Active Substance: OXYCODONE HYDROCHLORIDE
  2. HYDROXYCHLOR [Concomitant]
     Active Substance: HYDROXYCHLOROQUINE
  3. LEVALBUTEROL. [Concomitant]
     Active Substance: LEVALBUTEROL
  4. LOVASTATIN. [Concomitant]
     Active Substance: LOVASTATIN
  5. LEVOFLOXACIN. [Concomitant]
     Active Substance: LEVOFLOXACIN
  6. TRAZODONE [Concomitant]
     Active Substance: TRAZODONE HYDROCHLORIDE
  7. MONTELUKAST [Concomitant]
     Active Substance: MONTELUKAST SODIUM
  8. GABAPENTIN. [Concomitant]
     Active Substance: GABAPENTIN
  9. METHOCARBAM [Concomitant]
     Active Substance: METHOCARBAMOL
  10. SULFASALAZINE DELAYED-RELEASE [Concomitant]
     Active Substance: SULFASALAZINE
  11. PAROXETINE. [Concomitant]
     Active Substance: PAROXETINE
  12. HUMIRA [Suspect]
     Active Substance: ADALIMUMAB
     Indication: RHEUMATOID ARTHRITIS
     Route: 058
     Dates: start: 20160204
  13. LIDOCAINE. [Concomitant]
     Active Substance: LIDOCAINE
  14. OXYBUTYNIN. [Concomitant]
     Active Substance: OXYBUTYNIN CHLORIDE
  15. CLONIDINE. [Concomitant]
     Active Substance: CLONIDINE
  16. SPIRIVA [Concomitant]
     Active Substance: TIOTROPIUM BROMIDE MONOHYDRATE
  17. OXYCODONE [Concomitant]
     Active Substance: OXYCODONE
  18. LOVASTATIN. [Concomitant]
     Active Substance: LOVASTATIN
  19. PREDNISONE. [Concomitant]
     Active Substance: PREDNISONE
  20. PROAIR HFA [Concomitant]
     Active Substance: ALBUTEROL SULFATE

REACTIONS (2)
  - Hospitalisation [None]
  - Malaise [None]

NARRATIVE: CASE EVENT DATE: 201810
